FAERS Safety Report 23229045 (Version 1)
Quarter: 2023Q4

REPORT INFORMATION
  Report Type: Report from Study
  Country: US (occurrence: US)
  Receive Date: 20231127
  Receipt Date: 20231127
  Transmission Date: 20240110
  Serious: Yes (Hospitalization, Other)
  Sender: FDA-Public Use
  Company Number: US-ABBVIE-5510554

PATIENT
  Sex: Female

DRUGS (1)
  1. VENCLEXTA [Suspect]
     Active Substance: VENETOCLAX
     Indication: Acute myeloid leukaemia recurrent
     Dosage: TAKE 1 TABLET BY MOUTH DAILY FOR 21 DAYS. TAKE WITH A MEAL AND?WATER AT THE SAME TIME EACH DAY SW...
     Route: 048

REACTIONS (2)
  - Pyrexia [Recovering/Resolving]
  - Sepsis [Recovering/Resolving]
